FAERS Safety Report 9002196 (Version 10)
Quarter: 2014Q3

REPORT INFORMATION
  Report Type: Spontaneous
  Country: US (occurrence: US)
  Receive Date: 20130107
  Receipt Date: 20140722
  Transmission Date: 20150326
  Serious: Yes (Hospitalization, Disabling, Other)
  Sender: FDA-Public Use
  Company Number: US-009507513-1301USA000376

PATIENT
  Sex: Female
  Weight: 86.17 kg

DRUGS (1)
  1. NUVARING [Suspect]
     Active Substance: ETHINYL ESTRADIOL\ETONOGESTREL
     Indication: CONTRACEPTION
     Dosage: UNK
     Route: 067
     Dates: start: 200804, end: 201101

REACTIONS (28)
  - Abortion spontaneous [Unknown]
  - Deep vein thrombosis [Recovered/Resolved]
  - Unintended pregnancy [Recovered/Resolved]
  - Intervertebral disc protrusion [Unknown]
  - Optic neuritis [Unknown]
  - Back pain [Not Recovered/Not Resolved]
  - Urticaria [Unknown]
  - Muscle spasms [Unknown]
  - Surgery [Unknown]
  - Nerve injury [Not Recovered/Not Resolved]
  - International normalised ratio increased [Unknown]
  - Thrombocytosis [Unknown]
  - Multiple sclerosis [Not Recovered/Not Resolved]
  - Intervertebral disc protrusion [Unknown]
  - Injection site haemorrhage [Unknown]
  - Thrombosis [Unknown]
  - Neuralgia [Not Recovered/Not Resolved]
  - Obesity [Unknown]
  - Smear cervix abnormal [Unknown]
  - Iron deficiency anaemia [Unknown]
  - Coagulopathy [Unknown]
  - Female sterilisation [Unknown]
  - Embolism venous [Unknown]
  - Deep vein thrombosis [Unknown]
  - Liver function test abnormal [Unknown]
  - Neck pain [Unknown]
  - Adverse drug reaction [Unknown]
  - Lumbar radiculopathy [Unknown]

NARRATIVE: CASE EVENT DATE: 2009
